FAERS Safety Report 6752077-6 (Version None)
Quarter: 2010Q2

REPORT INFORMATION
  Report Type: 
  Country: None (occurrence: None)
  Receive Date: 20100602
  Receipt Date: 20100524
  Transmission Date: 20101027
  Serious: Yes (Other)
  Sender: FDA-Public Use
  Company Number: US-B.I. PHARMACEUTICALS,INC./RIDGEFIELD-2010-BP-05817PF

PATIENT
  Sex: Male

DRUGS (2)
  1. FLOMAX [Suspect]
  2. COREG [Suspect]
     Indication: MYOCARDIAL INFARCTION

REACTIONS (3)
  - ERECTION INCREASED [None]
  - HYPOTENSION [None]
  - MYOCARDIAL INFARCTION [None]
